FAERS Safety Report 12686481 (Version 1)
Quarter: 2016Q3

REPORT INFORMATION
  Report Type: Spontaneous
  Country: US (occurrence: US)
  Receive Date: 20160825
  Receipt Date: 20160825
  Transmission Date: 20161109
  Serious: No
  Sender: FDA-Public Use
  Company Number: US-BAYER-2016-164047

PATIENT
  Age: 74 Year
  Sex: Male
  Weight: 74.83 kg

DRUGS (1)
  1. ALEVE [Suspect]
     Active Substance: NAPROXEN SODIUM
     Indication: ANALGESIC THERAPY
     Dosage: TAKES 2 IN THE MORNING AND 1 IN THE EVENING

REACTIONS (2)
  - Expired product administered [None]
  - Product use issue [None]
